FAERS Safety Report 11666801 (Version 1)
Quarter: 2015Q4

REPORT INFORMATION
  Report Type: Spontaneous
  Country: US (occurrence: US)
  Receive Date: 20151027
  Receipt Date: 20151027
  Transmission Date: 20160304
  Serious: Yes (Hospitalization, Disabling, Other)
  Sender: FDA-Public Use
  Company Number: US-BAYER-2015-447275

PATIENT
  Sex: Female

DRUGS (5)
  1. AVELOX [Suspect]
     Active Substance: MOXIFLOXACIN HYDROCHLORIDE
     Dosage: UNK
  2. LEVAQUIN [Suspect]
     Active Substance: LEVOFLOXACIN
     Dosage: UNK
  3. CYTOXAN [Suspect]
     Active Substance: CYCLOPHOSPHAMIDE
     Indication: IMMUNOSUPPRESSION
     Dosage: UNK
  4. CIPRO [Suspect]
     Active Substance: CIPROFLOXACIN HYDROCHLORIDE
     Indication: EAR INFECTION
  5. CIPRO [Suspect]
     Active Substance: CIPROFLOXACIN HYDROCHLORIDE
     Indication: SINUSITIS
     Dosage: UNK

REACTIONS (51)
  - Arterial rupture [None]
  - Cognitive disorder [None]
  - Hypertension [None]
  - Impaired work ability [None]
  - Blood cortisol increased [None]
  - Poisoning [None]
  - Alopecia [None]
  - Pain [None]
  - Congenital arterial malformation [None]
  - Fibromyalgia [None]
  - Ovarian rupture [None]
  - Cholecystectomy [None]
  - Suicidal ideation [None]
  - Nail ridging [None]
  - Skin degenerative disorder [None]
  - Body temperature decreased [None]
  - Tremor [None]
  - Paraesthesia [None]
  - Burning sensation [None]
  - Anxiety [None]
  - Pain in extremity [None]
  - Arthralgia [None]
  - Intestinal operation [None]
  - Hypoperfusion [None]
  - Feeding disorder [None]
  - Abdominal pain [None]
  - Cutis laxa [None]
  - Night blindness [None]
  - Ligament pain [None]
  - Migraine [None]
  - Mitochondrial enzyme deficiency [None]
  - Chronic fatigue syndrome [None]
  - Bedridden [None]
  - Brain injury [None]
  - Weight decreased [None]
  - Disturbance in attention [None]
  - Insomnia [None]
  - Salivary hypersecretion [None]
  - Performance status decreased [None]
  - Eustachian tube obstruction [None]
  - Hypothyroidism [None]
  - Liver injury [None]
  - Mood swings [None]
  - Internal haemorrhage [None]
  - White matter lesion [None]
  - Vasculitis [None]
  - Renal impairment [None]
  - Visual impairment [None]
  - Fatigue [None]
  - Hypoaesthesia [None]
  - Tendon pain [None]

NARRATIVE: CASE EVENT DATE: 2009
